FAERS Safety Report 6831511-7 (Version None)
Quarter: 2010Q3

REPORT INFORMATION
  Report Type: 
  Country: None (occurrence: None)
  Receive Date: 20100712
  Receipt Date: 20100628
  Transmission Date: 20110219
  Serious: Yes (Other)
  Sender: FDA-Public Use
  Company Number: PHEH2010US03494

PATIENT
  Sex: Male

DRUGS (1)
  1. ZOMETA [Suspect]
     Dosage: UNK
     Dates: start: 20060301, end: 20090301

REACTIONS (6)
  - ANHEDONIA [None]
  - ANXIETY [None]
  - DISABILITY [None]
  - INJURY [None]
  - OSTEONECROSIS OF JAW [None]
  - PAIN [None]
